FAERS Safety Report 5146428-6 (Version None)
Quarter: 2006Q4

REPORT INFORMATION
  Report Type: 
  Country: None (occurrence: None)
  Receive Date: 20061102
  Receipt Date: 20060714
  Transmission Date: 20070319
  Serious: Yes (Other)
  Sender: FDA-Public Use
  Company Number: 2006095470

PATIENT
  Age: 55 Year
  Sex: Female

DRUGS (1)
  1. BEXTRA [Suspect]
     Dosage: (20 MG)

REACTIONS (2)
  - DERMATITIS ATOPIC [None]
  - DERMATITIS CONTACT [None]
